FAERS Safety Report 15158601 (Version 1)
Quarter: 2018Q3

REPORT INFORMATION
  Report Type: Spontaneous
  Country: US (occurrence: US)
  Receive Date: 20180620
  Receipt Date: 20180620
  Transmission Date: 20181010
  Serious: Yes (Hospitalization)
  Sender: FDA-Public Use
  Company Number: None

PATIENT
  Age: 1 Year
  Sex: Female

DRUGS (1)
  1. GENOTROPIN [Suspect]
     Active Substance: SOMATROPIN
     Dates: start: 20180110, end: 20180619

REACTIONS (3)
  - White blood cell count increased [None]
  - Pulmonary congestion [None]
  - Nasopharyngitis [None]

NARRATIVE: CASE EVENT DATE: 20180420
